FAERS Safety Report 11443845 (Version 3)
Quarter: 2015Q3

REPORT INFORMATION
  Report Type: Report from Study
  Country: US (occurrence: US)
  Receive Date: 20150901
  Receipt Date: 20150909
  Transmission Date: 20151125
  Serious: Yes (Other)
  Sender: FDA-Public Use
  Company Number: US-AMGEN-USASP2015087845

PATIENT
  Age: 63 Year
  Sex: Male

DRUGS (2)
  1. ENBREL [Suspect]
     Active Substance: ETANERCEPT
     Indication: ANKYLOSING SPONDYLITIS
     Dosage: 50 MG, QWK
     Route: 065
  2. ENBREL [Suspect]
     Active Substance: ETANERCEPT
     Indication: RHEUMATOID ARTHRITIS

REACTIONS (9)
  - Ulcer haemorrhage [Unknown]
  - Drug effect decreased [Unknown]
  - Musculoskeletal pain [Unknown]
  - Haemorrhage [Unknown]
  - Bleeding time prolonged [Unknown]
  - Pain [Unknown]
  - Drug ineffective [Unknown]
  - Scratch [Unknown]
  - Injury [Unknown]
